FAERS Safety Report 5221885-5 (Version None)
Quarter: 2007Q1

REPORT INFORMATION
  Report Type: 
  Country: None (occurrence: None)
  Receive Date: 20070126
  Receipt Date: 20070126
  Transmission Date: 20070707
  Serious: Yes (Hospitalization)
  Sender: FDA-Public Use
  Company Number: None

PATIENT
  Age: 59 Year
  Sex: Male
  Weight: 95.709 kg

DRUGS (12)
  1. DOCETAXEL [Suspect]
     Indication: PROSTATE CANCER
     Dosage: SS MG/M2 IV Q 21 DAY
     Route: 042
     Dates: start: 20061109
  2. DOCETAXEL [Suspect]
     Indication: PROSTATE CANCER
     Dosage: SS MG/M2 IV Q 21 DAY
     Route: 042
     Dates: start: 20061206
  3. KETOCONAZOLE [Suspect]
     Indication: PROSTATE CANCER
     Dosage: 400 MG PO BID
     Route: 048
     Dates: start: 20061110, end: 20061219
  4. ACYCLOVIR [Concomitant]
  5. VIAGRA [Concomitant]
  6. METOCLOPRAMIDE [Concomitant]
  7. METOPROLOL TARTRATE [Concomitant]
  8. ALPRAZOLAM [Concomitant]
  9. LISINOPRIL [Concomitant]
  10. ASPIRIN [Concomitant]
  11. OXYCODONE HCL [Concomitant]
  12. COMPAZINE [Concomitant]

REACTIONS (11)
  - CLOSTRIDIUM DIFFICILE COLITIS [None]
  - DIARRHOEA [None]
  - FEBRILE NEUTROPENIA [None]
  - HYPOKALAEMIA [None]
  - HYPOPHOSPHATAEMIA [None]
  - HYPOTENSION [None]
  - HYPOXIA [None]
  - NEUTROPENIA [None]
  - SEPSIS [None]
  - TACHYCARDIA [None]
  - VOMITING [None]
